FAERS Safety Report 8429656-3 (Version None)
Quarter: 2012Q2

REPORT INFORMATION
  Report Type: 
  Country: None (occurrence: None)
  Receive Date: 20120604
  Receipt Date: 20120521
  Transmission Date: 20120825
  Serious: Yes (Other)
  Sender: FDA-Public Use
  Company Number: FK201201468

PATIENT
  Age: 60 Year
  Sex: Female

DRUGS (3)
  1. CISPLATIN [Suspect]
     Indication: SMALL CELL LUNG CANCER STAGE UNSPECIFIED
  2. ETOPOSIDE [Concomitant]
  3. CARBOPLATIN [Concomitant]

REACTIONS (5)
  - EMBOLISM ARTERIAL [None]
  - AORTIC THROMBOSIS [None]
  - ARTERIAL THROMBOSIS LIMB [None]
  - ARTERIAL OCCLUSIVE DISEASE [None]
  - SUBCLAVIAN ARTERY STENOSIS [None]
